FAERS Safety Report 25973726 (Version 2)
Quarter: 2025Q4

REPORT INFORMATION
  Report Type: Spontaneous
  Country: EU (occurrence: EU)
  Receive Date: 20251029
  Receipt Date: 20251110
  Transmission Date: 20260117
  Serious: Yes (Hospitalization, Other)
  Sender: TEVA
  Company Number: EU-TEVA-VS-3386262

PATIENT
  Sex: Female

DRUGS (17)
  1. VINCRISTINE [Suspect]
     Active Substance: VINCRISTINE
     Indication: Acute lymphocytic leukaemia
     Dosage: 1.5 MG/M2/DOSE ON DAYS 8,15, 22, 29 AND 36
     Route: 042
  2. VINCRISTINE [Suspect]
     Active Substance: VINCRISTINE
     Indication: Acute lymphocytic leukaemia
     Dosage: 1.5 MG/M2/DOSE
     Route: 042
  3. VINCRISTINE [Suspect]
     Active Substance: VINCRISTINE
     Indication: Acute lymphocytic leukaemia
     Dosage: 1.5 MG/M2/DOSE ON DAYS 8, 15, 22 AND 29
     Route: 042
  4. METHOTREXATE [Suspect]
     Active Substance: METHOTREXATE
     Indication: Acute lymphocytic leukaemia
     Dosage: FOR 4 DOSES GIVEN 2 WEEKS APART
     Route: 042
  5. METHOTREXATE [Suspect]
     Active Substance: METHOTREXATE
     Indication: Acute lymphocytic leukaemia
     Route: 042
  6. ASPARAGINASE ERWINIA CHRYSANTHEMI [Concomitant]
     Active Substance: ASPARAGINASE ERWINIA CHRYSANTHEMI
     Indication: Acute lymphocytic leukaemia
     Dosage: 20 UI/M2/DOSE ON DAYS 27, 30,33, 36, ERWINIA-L-ASPARAGINASE
     Route: 042
  7. ASPARAGINASE ERWINIA CHRYSANTHEMI [Concomitant]
     Active Substance: ASPARAGINASE ERWINIA CHRYSANTHEMI
     Indication: Acute lymphocytic leukaemia
     Dosage: 10UI/M2/DOSE ON DAYS 15,18,21,24, ERWINIA-L-ASPARAGINASE
     Route: 042
  8. CYCLOPHOSPHAMIDE [Concomitant]
     Active Substance: CYCLOPHOSPHAMIDE
     Indication: Acute lymphocytic leukaemia
     Dosage: 500 MG/M2/DOSE
     Route: 042
  9. ASPARAGINASE [Suspect]
     Active Substance: ASPARAGINASE
     Indication: Acute lymphocytic leukaemia
     Dosage: 5 UI/M2/DOSE ON DAYS 15, 18, 21, 24, 27, 30, 33, 36, 39
     Route: 042
  10. DAUNORUBICIN [Suspect]
     Active Substance: DAUNORUBICIN
     Indication: Acute lymphocytic leukaemia
     Dosage: 30 MG/M2/DOSE ON DAY 32, LIPOSOMAL
     Route: 042
  11. CYTARABINE [Concomitant]
     Active Substance: CYTARABINE
     Indication: Acute lymphocytic leukaemia
     Route: 058
  12. PREDNISONE [Concomitant]
     Active Substance: PREDNISONE
     Indication: Acute lymphocytic leukaemia
     Dosage: ON DAY 1-28, TAPERING OVER 12 DAYS
     Route: 048
  13. MERCAPTOPURINE [Suspect]
     Active Substance: MERCAPTOPURINE
     Indication: Acute lymphocytic leukaemia
     Dosage: FOR 56 CONSECUTIVE DAYS, 6-MERCAPTOPURINE
     Route: 048
  14. MERCAPTOPURINE [Suspect]
     Active Substance: MERCAPTOPURINE
     Indication: Acute lymphocytic leukaemia
     Dosage: FOR 28 CONSECUTIVE DAYS, 6-MERCAPTOPURINE
     Route: 048
  15. DEXAMETHASONE ACETATE [Suspect]
     Active Substance: DEXAMETHASONE ACETATE
     Indication: Acute lymphocytic leukaemia
     Dosage: 6 MG/M2/DAY ONCE MONTHLY
     Route: 048
  16. DEXAMETHASONE ACETATE [Suspect]
     Active Substance: DEXAMETHASONE ACETATE
     Indication: Acute lymphocytic leukaemia
     Dosage: ON DAYS 1-21 FOLLOWED BY TAPERING OVER 9 DAYS
     Route: 048
  17. THIOGUANINE [Concomitant]
     Active Substance: THIOGUANINE
     Indication: Acute lymphocytic leukaemia
     Dosage: FOR 2 CONSECUTIVE WEEKS, 6-THIOGUANINE
     Route: 048

REACTIONS (5)
  - Drug hypersensitivity [Unknown]
  - Hypertransaminasaemia [Unknown]
  - Respiratory failure [Unknown]
  - Thrombocytopenia [Unknown]
  - Coronavirus pneumonia [Unknown]
